FAERS Safety Report 16771786 (Version 3)
Quarter: 2020Q2

REPORT INFORMATION
  Report Type: Spontaneous
  Country: FI (occurrence: FI)
  Receive Date: 20190904
  Receipt Date: 20200525
  Transmission Date: 20200713
  Serious: Yes (Other)
  Sender: FDA-Public Use
  Company Number: FI-ROCHE-2390040

PATIENT
  Age: 54 Year
  Sex: Female
  Weight: 85 kg

DRUGS (45)
  1. HERCEPTIN [Suspect]
     Active Substance: TRASTUZUMAB
     Indication: BREAST CANCER METASTATIC
     Route: 058
     Dates: start: 20170605
  2. THYROXIN [Concomitant]
     Active Substance: LEVOTHYROXINE
     Indication: PRODUCT USED FOR UNKNOWN INDICATION
     Route: 065
  3. PANTOPRAZOL [PANTOPRAZOLE] [Concomitant]
     Active Substance: PANTOPRAZOLE
     Indication: PRODUCT USED FOR UNKNOWN INDICATION
     Dosage: WHEN NEEDED 40 MG IN THE EVENING
     Route: 065
  4. FLUOROURACIL. [Concomitant]
     Active Substance: FLUOROURACIL
     Indication: BREAST CANCER METASTATIC
     Route: 065
     Dates: start: 20171010
  5. PRIMPERAN [Concomitant]
     Active Substance: METOCLOPRAMIDE HYDROCHLORIDE
     Dosage: AS REQUIRED
     Route: 065
  6. HERCEPTIN [Suspect]
     Active Substance: TRASTUZUMAB
     Route: 058
     Dates: start: 20171213
  7. PERJETA [Suspect]
     Active Substance: PERTUZUMAB
     Route: 042
     Dates: start: 20170718
  8. TAXOTERE [Concomitant]
     Active Substance: DOCETAXEL
     Indication: BREAST CANCER METASTATIC
     Route: 042
     Dates: start: 20170605
  9. TAXOTERE [Concomitant]
     Active Substance: DOCETAXEL
     Route: 042
     Dates: start: 20171101
  10. LETROZOL [Concomitant]
     Active Substance: LETROZOLE
     Indication: BREAST CANCER METASTATIC
     Route: 065
     Dates: start: 201801, end: 20190705
  11. ARTELAC [HYPROMELLOSE] [Concomitant]
     Active Substance: HYPROMELLOSES
     Indication: PRODUCT USED FOR UNKNOWN INDICATION
     Route: 065
  12. CYCLOPHOSPHAMIDE. [Concomitant]
     Active Substance: CYCLOPHOSPHAMIDE
     Indication: BREAST CANCER METASTATIC
     Route: 065
     Dates: start: 20171010
  13. ARIMIDEX [Concomitant]
     Active Substance: ANASTROZOLE
     Route: 048
     Dates: start: 20200208
  14. IBRANCE [Concomitant]
     Active Substance: PALBOCICLIB
     Route: 065
     Dates: start: 20200326, end: 20200413
  15. HERCEPTIN [Suspect]
     Active Substance: TRASTUZUMAB
     Route: 058
     Dates: start: 20170627
  16. PERJETA [Suspect]
     Active Substance: PERTUZUMAB
     Route: 042
     Dates: start: 20171101
  17. PERJETA [Suspect]
     Active Substance: PERTUZUMAB
     Route: 042
     Dates: start: 20171213
  18. TAXOTERE [Concomitant]
     Active Substance: DOCETAXEL
     Route: 042
     Dates: start: 20171122
  19. VENTOLINE [SALBUTAMOL] [Concomitant]
     Active Substance: ALBUTEROL SULFATE
     Indication: PRODUCT USED FOR UNKNOWN INDICATION
     Dosage: WHEN NEEDED
     Route: 065
  20. IBRANCE [Concomitant]
     Active Substance: PALBOCICLIB
     Route: 065
     Dates: start: 20200106, end: 20200124
  21. IBRANCE [Concomitant]
     Active Substance: PALBOCICLIB
     Route: 065
     Dates: start: 20200414
  22. ETHYLMORPHINE HYDROCHLORIDE [Concomitant]
     Active Substance: ETHYLMORPHINE HYDROCHLORIDE
     Indication: HER2 POSITIVE BREAST CANCER
     Route: 065
     Dates: start: 20171010
  23. KADCYLA [Suspect]
     Active Substance: ADO-TRASTUZUMAB EMTANSINE
     Route: 042
     Dates: start: 20191112, end: 20191112
  24. TAXOTERE [Concomitant]
     Active Substance: DOCETAXEL
     Route: 042
     Dates: start: 20170627
  25. TAXOTERE [Concomitant]
     Active Substance: DOCETAXEL
     Route: 042
     Dates: start: 20170809
  26. OXYNORM [Concomitant]
     Active Substance: OXYCODONE HYDROCHLORIDE
     Indication: PAIN
     Dosage: WHEN NEEDED 5-10 MG
     Route: 065
  27. GRANISETRON [Concomitant]
     Active Substance: GRANISETRON
     Dosage: AS REQUIRED
     Route: 065
  28. IBANDRONIC ACID. [Concomitant]
     Active Substance: IBANDRONIC ACID
     Route: 065
     Dates: start: 20190823, end: 20191114
  29. HERCEPTIN [Suspect]
     Active Substance: TRASTUZUMAB
     Route: 058
     Dates: start: 20170718
  30. HERCEPTIN [Suspect]
     Active Substance: TRASTUZUMAB
     Route: 058
     Dates: start: 20170809
  31. HERCEPTIN [Suspect]
     Active Substance: TRASTUZUMAB
     Route: 058
     Dates: start: 20171122
  32. HERCEPTIN [Suspect]
     Active Substance: TRASTUZUMAB
     Route: 058
     Dates: start: 201801, end: 20190705
  33. PERJETA [Suspect]
     Active Substance: PERTUZUMAB
     Indication: BREAST CANCER METASTATIC
     Route: 042
     Dates: start: 20170605
  34. KADCYLA [Suspect]
     Active Substance: ADO-TRASTUZUMAB EMTANSINE
     Indication: BREAST CANCER METASTATIC
     Route: 042
     Dates: start: 20190726, end: 20191022
  35. LAXOBERON [Concomitant]
     Active Substance: SODIUM PICOSULFATE
     Dosage: AS REQUIRED
     Route: 048
  36. IBRANCE [Concomitant]
     Active Substance: PALBOCICLIB
     Route: 065
     Dates: start: 20200220, end: 20200304
  37. HERCEPTIN [Suspect]
     Active Substance: TRASTUZUMAB
     Route: 058
     Dates: start: 20171101
  38. PERJETA [Suspect]
     Active Substance: PERTUZUMAB
     Route: 042
     Dates: start: 20170809
  39. TAXOTERE [Concomitant]
     Active Substance: DOCETAXEL
     Route: 042
     Dates: start: 20171213
  40. PERJETA [Suspect]
     Active Substance: PERTUZUMAB
     Route: 042
     Dates: start: 20170627
  41. PERJETA [Suspect]
     Active Substance: PERTUZUMAB
     Route: 042
     Dates: start: 20171122
  42. EPIRUBICIN [Concomitant]
     Active Substance: EPIRUBICIN
     Indication: BREAST CANCER METASTATIC
     Route: 065
     Dates: start: 20171010
  43. EXEMESTANE. [Concomitant]
     Active Substance: EXEMESTANE
     Route: 048
     Dates: start: 20191204, end: 20200208
  44. TAXOTERE [Concomitant]
     Active Substance: DOCETAXEL
     Route: 042
     Dates: start: 20170718
  45. CALCICHEW D3 FORTE [Concomitant]
     Active Substance: CALCIUM\CHOLECALCIFEROL
     Indication: PRODUCT USED FOR UNKNOWN INDICATION
     Route: 065
     Dates: start: 2017

REACTIONS (21)
  - Hypoaesthesia [Recovered/Resolved]
  - Diarrhoea [Unknown]
  - Contusion [Unknown]
  - Hepatic failure [Not Recovered/Not Resolved]
  - Fatigue [Unknown]
  - Renal impairment [Unknown]
  - Decreased appetite [Unknown]
  - Headache [Unknown]
  - Epistaxis [Unknown]
  - Hydronephrosis [Unknown]
  - Vomiting [Unknown]
  - Visual impairment [Unknown]
  - Pain [Unknown]
  - Dry eye [Not Recovered/Not Resolved]
  - Blood pressure increased [Unknown]
  - Thrombocytopenia [Recovered/Resolved]
  - Epistaxis [Unknown]
  - Cough [Unknown]
  - Nausea [Recovered/Resolved]
  - Paraesthesia [Recovered/Resolved]
  - Visual acuity reduced [Not Recovered/Not Resolved]

NARRATIVE: CASE EVENT DATE: 2019
